FAERS Safety Report 8718888 (Version 2)
Quarter: 2013Q4

REPORT INFORMATION
  Report Type: Spontaneous
  Country: US (occurrence: US)
  Receive Date: 20120811
  Receipt Date: 20131101
  Transmission Date: 20140711
  Serious: No
  Sender: FDA-Public Use
  Company Number: US-009507513-1208USA003514

PATIENT
  Sex: Female

DRUGS (4)
  1. SAPHRIS [Suspect]
     Indication: PSYCHOTIC DISORDER
     Dosage: 10 MG, BID
     Route: 060
  2. SAPHRIS [Suspect]
     Indication: BIPOLAR DISORDER
  3. LITHIUM [Concomitant]
  4. LAMICTAL [Concomitant]

REACTIONS (1)
  - Swollen tongue [Recovered/Resolved]
